FAERS Safety Report 6105403-5 (Version None)
Quarter: 2009Q1

REPORT INFORMATION
  Report Type: 
  Country: None (occurrence: None)
  Receive Date: 20090304
  Receipt Date: 20090304
  Transmission Date: 20090719
  Serious: Yes (Hospitalization)
  Sender: FDA-Public Use
  Company Number: None

PATIENT
  Age: 54 Year
  Sex: Female
  Weight: 85.7 kg

DRUGS (24)
  1. XIGRIS [Suspect]
     Indication: ISCHAEMIC STROKE
     Dosage: 860MCG, BOLUS+DRIP XL, IV
     Route: 042
     Dates: start: 20090203
  2. LISINOPRIL [Concomitant]
  3. NEXIUM [Concomitant]
  4. IBUPROPHEN [Concomitant]
  5. LIPITOR [Concomitant]
  6. ASPIRIN [Concomitant]
  7. NORVASC [Concomitant]
  8. TYLENOL (CAPLET) [Concomitant]
  9. LOVENOX [Concomitant]
  10. BACTRIM [Concomitant]
  11. OMEPRAZOLE [Concomitant]
  12. CEFEPIME [Concomitant]
  13. HYDROCHLOROTHIAZIDE [Concomitant]
  14. REGULAR INSULIN [Concomitant]
  15. COLACE [Concomitant]
  16. FENTANYL-25 [Concomitant]
  17. MANNITOL [Concomitant]
  18. HEPARIN [Concomitant]
  19. REGLAN [Concomitant]
  20. NORMAL SALINE BOLUS [Concomitant]
  21. SENOKOT [Concomitant]
  22. OXYCODONE [Concomitant]
  23. POTASSIUM CHLORIDE [Concomitant]
  24. LANTUS [Concomitant]

REACTIONS (6)
  - BRAIN HERNIATION [None]
  - BRAIN OEDEMA [None]
  - CEREBRAL HAEMORRHAGE [None]
  - CEREBRAL INFARCTION [None]
  - INTRACRANIAL PRESSURE INCREASED [None]
  - STROKE IN EVOLUTION [None]
